FAERS Safety Report 6850354-1 (Version None)
Quarter: 2010Q3

REPORT INFORMATION
  Report Type: 
  Country: None (occurrence: None)
  Receive Date: 20100716
  Receipt Date: 20071017
  Transmission Date: 20110219
  Serious: No
  Sender: FDA-Public Use
  Company Number: US-PFIZER INC-2007088126

PATIENT
  Sex: Female
  Weight: 58.1 kg

DRUGS (10)
  1. CHANTIX [Suspect]
     Indication: SMOKING CESSATION THERAPY
     Dates: start: 20071001
  2. CAPTOPRIL [Concomitant]
  3. BACLOFEN [Concomitant]
  4. HYDROCHLOROTHIAZIDE [Concomitant]
  5. AMITRIPTYLINE HYDROCHLORIDE [Concomitant]
  6. FOSAMAX [Concomitant]
  7. CALCIUM [Concomitant]
  8. DRUG, UNSPECIFIED [Concomitant]
  9. DRUG, UNSPECIFIED [Concomitant]
  10. FLUOXETINE HCL [Concomitant]

REACTIONS (1)
  - CIRCADIAN RHYTHM SLEEP DISORDER [None]
